FAERS Safety Report 20926004 (Version 1)
Quarter: 2022Q2

REPORT INFORMATION
  Report Type: Spontaneous
  Country: US (occurrence: None)
  Receive Date: 20220607
  Receipt Date: 20220607
  Transmission Date: 20220720
  Serious: Yes (Hospitalization)
  Sender: FDA-Public Use
  Company Number: None

PATIENT
  Sex: Male

DRUGS (1)
  1. HUMIRA [Suspect]
     Active Substance: ADALIMUMAB
     Indication: Psoriatic arthropathy
     Dosage: 40MG EVERY 7 DAYS SUBCUTANEOUSLY?
     Route: 058
     Dates: start: 20210520

REACTIONS (5)
  - Hypoaesthesia [None]
  - Paraesthesia [None]
  - Pain in extremity [None]
  - Back disorder [None]
  - Constipation [None]
